FAERS Safety Report 6528929-9 (Version None)
Quarter: 2009Q4

REPORT INFORMATION
  Report Type: 
  Country: None (occurrence: None)
  Receive Date: 20091224
  Receipt Date: 20091215
  Transmission Date: 20100525
  Serious: Yes (Hospitalization)
  Sender: FDA-Public Use
  Company Number: 2009AL007856

PATIENT
  Age: 23 Year
  Sex: Female

DRUGS (2)
  1. BUSPIRONE HCL [Suspect]
     Indication: DRUG USE FOR UNKNOWN INDICATION
     Dosage: 50 MG;X1;PO
     Route: 048
     Dates: start: 20091106, end: 20091106
  2. OXAZEPAM [Suspect]
     Indication: DRUG USE FOR UNKNOWN INDICATION
     Dosage: 50 MG;X1;PO
     Route: 048
     Dates: start: 20091106, end: 20091106

REACTIONS (2)
  - DRUG TOXICITY [None]
  - INCORRECT DOSE ADMINISTERED [None]
